FAERS Safety Report 25955278 (Version 1)
Quarter: 2025Q4

REPORT INFORMATION
  Report Type: Report from Study
  Country: EU (occurrence: EU)
  Receive Date: 20251024
  Receipt Date: 20251024
  Transmission Date: 20260118
  Serious: Yes (Hospitalization, Other)
  Sender: IPSEN BIOPHARMACEUTICALS, INC.
  Company Number: EU-SERVIER-S20013078

PATIENT
  Age: 56 Year
  Sex: Male
  Weight: 65 kg

DRUGS (10)
  1. ONIVYDE [Suspect]
     Active Substance: IRINOTECAN HYDROCHLORIDE
     Indication: Pancreatic carcinoma metastatic
     Dosage: (120 MG (70 MG/M2)
     Dates: start: 20200421, end: 20201104
  2. ONIVYDE [Suspect]
     Active Substance: IRINOTECAN HYDROCHLORIDE
     Dosage: UNK
  3. FLUOROURACIL [Concomitant]
     Active Substance: FLUOROURACIL
     Indication: Pancreatic carcinoma metastatic
     Dosage: 4200 MG (2400 MG/M2)
     Dates: start: 20200421, end: 20201118
  4. FLUOROURACIL [Concomitant]
     Active Substance: FLUOROURACIL
     Dosage: UNK
  5. OXALIPLATIN [Concomitant]
     Active Substance: OXALIPLATIN
     Indication: Pancreatic carcinoma metastatic
     Dosage: 150 MG (85 MG/M2)
     Dates: start: 20200505, end: 20201118
  6. LEUCOVORIN [Concomitant]
     Active Substance: LEUCOVORIN\LEUCOVORIN CALCIUM
     Indication: Pancreatic carcinoma metastatic
     Dosage: 700 MG (400 MG/M2)
     Dates: start: 20200421, end: 20201118
  7. LEUCOVORIN [Concomitant]
     Active Substance: LEUCOVORIN\LEUCOVORIN CALCIUM
     Dosage: UNK
  8. RAMIPRIL [Concomitant]
     Active Substance: RAMIPRIL
     Indication: Hypertension
     Dosage: 2.5 MG, QD
  9. METOPROLOL [Concomitant]
     Active Substance: METOPROLOL
     Indication: Hypertension
     Dosage: 47.5 MG, QD
  10. LEVOFLOXACIN [Concomitant]
     Active Substance: LEVOFLOXACIN
     Dosage: 500 MG, DAILY
     Route: 048
     Dates: start: 20201211, end: 20210117

REACTIONS (1)
  - Epididymitis [Recovered/Resolved]

NARRATIVE: CASE EVENT DATE: 20201215
